FAERS Safety Report 7045711-7 (Version None)
Quarter: 2010Q4

REPORT INFORMATION
  Report Type: 
  Country: None (occurrence: None)
  Receive Date: 20101014
  Receipt Date: 20101011
  Transmission Date: 20110411
  Serious: Yes (Hospitalization)
  Sender: FDA-Public Use
  Company Number: FR-BRISTOL-MYERS SQUIBB COMPANY-15331929

PATIENT
  Age: 80 Year
  Sex: Female

DRUGS (9)
  1. ETOPOPHOS PRESERVATIVE FREE [Suspect]
     Indication: DIFFUSE LARGE B-CELL LYMPHOMA STAGE IV
     Dosage: 1ST COURSE: 142MG SECOND COURSE ON 29-MAR-2010
     Route: 042
     Dates: start: 20100307, end: 20100419
  2. ENDOXAN [Suspect]
     Indication: DIFFUSE LARGE B-CELL LYMPHOMA STAGE IV
     Dosage: 1ST COURSE: 850MG SECOND COURSE ON 29-MAR-2010
     Route: 042
     Dates: start: 20100307, end: 20100419
  3. MABTHERA [Suspect]
     Indication: DIFFUSE LARGE B-CELL LYMPHOMA STAGE IV
     Dosage: 1ST COURSE: 106.5 MG + 425MG SECOND COURSE ON 29-MAR-2010
     Dates: start: 20100307, end: 20100419
  4. FLECAINIDE ACETATE [Suspect]
     Indication: ARRHYTHMIA
     Dosage: SECOND COURSE ON 29-MAR-2010
     Route: 048
     Dates: start: 20100307, end: 20100419
  5. LEVOTIROX [Suspect]
     Indication: HYPOTHYROIDISM
     Dosage: SECOND COURSE ON 29-MAR-2010
     Route: 048
     Dates: start: 20100307, end: 20100419
  6. BACTRIM DS [Concomitant]
     Dosage: 3 DF = 3 TABS
     Dates: start: 20100307, end: 20100506
  7. SERESTA [Concomitant]
     Dosage: 1 DF - 1 TABS
     Route: 048
     Dates: start: 20100307, end: 20100506
  8. VALACYCLOVIR HYDROCHLORIDE [Concomitant]
     Route: 048
     Dates: start: 20100307
  9. INNOHEP [Concomitant]
     Route: 058
     Dates: start: 20100307, end: 20100506

REACTIONS (2)
  - LEFT VENTRICULAR FAILURE [None]
  - NASOPHARYNGITIS [None]
